FAERS Safety Report 18310871 (Version 1)
Quarter: 2020Q3

REPORT INFORMATION
  Report Type: Spontaneous
  Country: US (occurrence: US)
  Receive Date: 20200925
  Receipt Date: 20200925
  Transmission Date: 20201103
  Serious: No
  Sender: FDA-Public Use
  Company Number: US-ALVOGEN-2020-ALVOGEN-113480

PATIENT
  Age: 74 Year
  Sex: Male
  Weight: 84.81 kg

DRUGS (3)
  1. GRALISE [Suspect]
     Active Substance: GABAPENTIN
     Indication: SPONDYLITIS
  2. GRALISE [Suspect]
     Active Substance: GABAPENTIN
     Indication: SPINAL STENOSIS
  3. GRALISE [Suspect]
     Active Substance: GABAPENTIN
     Indication: BACK PAIN
     Dosage: 600 MG, QD
     Route: 048
     Dates: start: 20191203

REACTIONS (2)
  - Product use in unapproved indication [Unknown]
  - Dizziness [Not Recovered/Not Resolved]

NARRATIVE: CASE EVENT DATE: 201912
